FAERS Safety Report 8429386 (Version 5)
Quarter: 2012Q4

REPORT INFORMATION
  Report Type: Report from Study
  Country: JP (occurrence: JP)
  Receive Date: 20120227
  Receipt Date: 20121221
  Transmission Date: 20130627
  Serious: Yes (Other)
  Sender: FDA-Public Use
  Company Number: JP-JNJFOC-20120210942

PATIENT
  Age: 60 Year
  Sex: Female
  Weight: 54 kg

DRUGS (26)
  1. INVEGA [Suspect]
     Indication: SCHIZOPHRENIA, DISORGANISED TYPE
     Route: 048
     Dates: start: 20120320
  2. INVEGA [Suspect]
     Indication: SCHIZOPHRENIA, DISORGANISED TYPE
     Route: 048
     Dates: start: 20111017, end: 20120319
  3. INVEGA [Suspect]
     Indication: SCHIZOPHRENIA, DISORGANISED TYPE
     Route: 048
     Dates: start: 20110925, end: 20111016
  4. RISPERDAL [Suspect]
     Indication: INSOMNIA
     Route: 048
     Dates: end: 20110925
  5. RISPERDAL [Suspect]
     Indication: INSOMNIA
     Route: 048
     Dates: start: 20111128, end: 20111205
  6. RISPERDAL [Suspect]
     Indication: INSOMNIA
     Route: 048
     Dates: start: 20111024, end: 20111127
  7. RISPERDAL [Suspect]
     Indication: INSOMNIA
     Route: 048
     Dates: start: 20111003, end: 20111023
  8. RISPERDAL [Suspect]
     Indication: INSOMNIA
     Route: 048
     Dates: start: 20110930, end: 20111002
  9. RISPERDAL [Suspect]
     Indication: INSOMNIA
     Route: 048
     Dates: start: 20110926, end: 20110929
  10. RISPERDAL [Suspect]
     Indication: SCHIZOPHRENIA, DISORGANISED TYPE
     Route: 048
     Dates: end: 20110925
  11. RISPERDAL [Suspect]
     Indication: SCHIZOPHRENIA, DISORGANISED TYPE
     Route: 048
     Dates: start: 20110926, end: 20110929
  12. RISPERDAL [Suspect]
     Indication: SCHIZOPHRENIA, DISORGANISED TYPE
     Route: 048
     Dates: start: 20110930, end: 20111002
  13. RISPERDAL [Suspect]
     Indication: SCHIZOPHRENIA, DISORGANISED TYPE
     Route: 048
     Dates: start: 20111003, end: 20111023
  14. RISPERDAL [Suspect]
     Indication: SCHIZOPHRENIA, DISORGANISED TYPE
     Route: 048
     Dates: start: 20111024, end: 20111127
  15. RISPERDAL [Suspect]
     Indication: SCHIZOPHRENIA, DISORGANISED TYPE
     Route: 048
     Dates: start: 20111128, end: 20111205
  16. REBAMIPIDE [Concomitant]
     Indication: GASTRITIS
     Route: 048
  17. DEPAKENE-R [Concomitant]
     Indication: SCHIZOPHRENIA, DISORGANISED TYPE
     Route: 048
  18. MAGMITT [Concomitant]
     Indication: CONSTIPATION
     Route: 048
  19. TRIHEXYPHENIDYL HYDROCHLORIDE [Concomitant]
     Indication: PARKINSONISM
     Route: 048
  20. GASMOTIN [Concomitant]
     Indication: GASTRITIS
     Route: 048
  21. NELUROLEN [Concomitant]
     Indication: SCHIZOPHRENIA, DISORGANISED TYPE
     Route: 048
  22. SORENTMIN [Concomitant]
     Indication: SCHIZOPHRENIA, DISORGANISED TYPE
     Dosage: 0.25 mg
     Route: 048
  23. FLUNITRAZEPAM [Concomitant]
     Indication: SCHIZOPHRENIA, DISORGANISED TYPE
     Route: 048
  24. PURSENNID [Concomitant]
     Indication: CONSTIPATION
     Route: 048
  25. KONSUBEN [Concomitant]
     Indication: CONSTIPATION
     Dosage: 2.5 mg
     Route: 048
  26. EBRANTIL [Concomitant]
     Indication: DYSURIA
     Route: 048
     Dates: start: 20111024, end: 20111212

REACTIONS (4)
  - Parkinsonism [Not Recovered/Not Resolved]
  - Dysuria [Recovered/Resolved]
  - Sinus bradycardia [Not Recovered/Not Resolved]
  - Insomnia [Recovered/Resolved]
